FAERS Safety Report 19167587 (Version 2)
Quarter: 2021Q2

REPORT INFORMATION
  Report Type: Spontaneous
  Country: NZ (occurrence: NZ)
  Receive Date: 20210422
  Receipt Date: 20210614
  Transmission Date: 20210717
  Serious: Yes (Hospitalization, Other)
  Sender: FDA-Public Use
  Company Number: NZ-ABBVIE-21K-118-3864247-00

PATIENT
  Sex: Female
  Weight: 41 kg

DRUGS (6)
  1. INFLIXIMAB [Concomitant]
     Active Substance: INFLIXIMAB
     Indication: PRODUCT USED FOR UNKNOWN INDICATION
     Dates: start: 202003
  2. AZATHIOPRINE. [Concomitant]
     Active Substance: AZATHIOPRINE
     Indication: PRODUCT USED FOR UNKNOWN INDICATION
     Route: 048
  3. HUMIRA [Suspect]
     Active Substance: ADALIMUMAB
     Route: 058
  4. HUMIRA [Suspect]
     Active Substance: ADALIMUMAB
     Indication: INFLAMMATORY BOWEL DISEASE
     Route: 058
  5. HUMIRA [Suspect]
     Active Substance: ADALIMUMAB
     Route: 058
  6. ASACOL [Concomitant]
     Active Substance: MESALAMINE
     Indication: PRODUCT USED FOR UNKNOWN INDICATION
     Route: 048

REACTIONS (8)
  - Faecal calprotectin abnormal [Unknown]
  - Therapeutic product effect decreased [Unknown]
  - Investigation abnormal [Unknown]
  - General symptom [Unknown]
  - Generalised tonic-clonic seizure [Recovered/Resolved]
  - Inflammatory bowel disease [Unknown]
  - Unevaluable event [Not Recovered/Not Resolved]
  - Drug level abnormal [Unknown]
